FAERS Safety Report 12353319 (Version 1)
Quarter: 2016Q2

REPORT INFORMATION
  Report Type: Spontaneous
  Country: JP (occurrence: JP)
  Receive Date: 20160510
  Receipt Date: 20160510
  Transmission Date: 20160815
  Serious: Yes (Hospitalization)
  Sender: FDA-Public Use
  Company Number: 2016-000898 WARNER CHILCOTT

PATIENT
  Age: 68 Year
  Sex: Female

DRUGS (8)
  1. ACTONEL [Suspect]
     Active Substance: RISEDRONATE SODIUM
     Indication: OSTEOPOROSIS
     Route: 048
     Dates: start: 20160404, end: 20160404
  2. JANUVIA [Concomitant]
     Active Substance: SITAGLIPTIN PHOSPHATE
  3. VASOLAN [Concomitant]
     Active Substance: VERAPAMIL HYDROCHLORIDE
  4. VOGLIBOSE [Concomitant]
     Active Substance: VOGLIBOSE
  5. ATORVASTATIN CALCIUM. [Concomitant]
     Active Substance: ATORVASTATIN CALCIUM
  6. CALONAL [Concomitant]
     Active Substance: ACETAMINOPHEN
  7. MECOBALAMIN [Concomitant]
     Active Substance: METHYLCOBALAMIN
  8. SOLANAX [Concomitant]
     Active Substance: ALPRAZOLAM

REACTIONS (5)
  - Abdominal discomfort [Recovering/Resolving]
  - Headache [Recovering/Resolving]
  - Nausea [Unknown]
  - Acute phase reaction [Unknown]
  - Myalgia [Recovering/Resolving]

NARRATIVE: CASE EVENT DATE: 20160405
